FAERS Safety Report 8809288 (Version 1)
Quarter: 2012Q4

REPORT INFORMATION
  Report Type: 
  Country: US (occurrence: US)
  Receive Date: 20120926
  Receipt Date: 20120926
  Transmission Date: 20130627
  Serious: Yes (Hospitalization, Other)
  Sender: FDA-Public Use
  Company Number: US-ABBOTT-12P-163-0986553-00

PATIENT
  Age: 55 Year
  Sex: Male

DRUGS (2)
  1. ACICLOVIR [Suspect]
     Indication: HERPES SIMPLEX
     Route: 048
  2. HYDROMORPHONE [Suspect]
     Indication: PAIN

REACTIONS (3)
  - Meningitis herpes [Recovered/Resolved]
  - Meningitis herpes [Recovered/Resolved]
  - Renal failure [Unknown]
